FAERS Safety Report 4607755-1 (Version None)
Quarter: 2005Q1

REPORT INFORMATION
  Report Type: 
  Country: None (occurrence: None)
  Receive Date: 20050314
  Receipt Date: 20050310
  Transmission Date: 20050727
  Serious: Yes (Hospitalization, Other)
  Sender: FDA-Public Use
  Company Number: US-GLAXOSMITHKLINE-A0549230A

PATIENT
  Age: 16 Year
  Sex: Female

DRUGS (2)
  1. PAXIL CR [Suspect]
     Indication: PANIC DISORDER
     Dosage: 25MG PER DAY
     Route: 048
     Dates: start: 20040301
  2. PAXIL [Suspect]
     Indication: ANXIETY
     Dosage: 20MG PER DAY
     Route: 048
     Dates: start: 20030101, end: 20040301

REACTIONS (3)
  - ALCOHOL POISONING [None]
  - DRUG INEFFECTIVE [None]
  - MOOD SWINGS [None]
